FAERS Safety Report 13487744 (Version 2)
Quarter: 2018Q1

REPORT INFORMATION
  Report Type: Spontaneous
  Country: US (occurrence: US)
  Receive Date: 20170426
  Receipt Date: 20180306
  Transmission Date: 20180508
  Serious: No
  Sender: FDA-Public Use
  Company Number: US-ALKERMES INC.-ALK-2016-002952

PATIENT
  Age: 27 Year
  Sex: Female
  Weight: 63.49 kg

DRUGS (1)
  1. VIVITROL [Suspect]
     Active Substance: NALTREXONE
     Indication: ALCOHOLISM
     Dosage: 380 MG, QMO
     Route: 030
     Dates: start: 20160913

REACTIONS (7)
  - Injection site swelling [Recovered/Resolved]
  - Injection site inflammation [Recovered/Resolved]
  - Injection site pain [Recovered/Resolved]
  - Drug administration error [Unknown]
  - Injection site warmth [Recovered/Resolved]
  - Injection site reaction [Recovered/Resolved]
  - Injection site cellulitis [Recovered/Resolved]

NARRATIVE: CASE EVENT DATE: 201609
